FAERS Safety Report 17353345 (Version 1)
Quarter: 2020Q1

REPORT INFORMATION
  Report Type: Spontaneous
  Country: FR (occurrence: FR)
  Receive Date: 20200131
  Receipt Date: 20200131
  Transmission Date: 20200409
  Serious: Yes (Life-Threatening)
  Sender: FDA-Public Use
  Company Number: FR-TEVA-2020-FR-1178273

PATIENT
  Age: 49 Year
  Sex: Male
  Weight: 81 kg

DRUGS (13)
  1. INEXIUM 40 MG, COMPRIM? GASTRO-R?SISTANT [Suspect]
     Active Substance: ESOMEPRAZOLE
     Indication: BURN OESOPHAGEAL
     Dosage: 2 DF
     Route: 048
     Dates: start: 20190401, end: 20190418
  2. FLUOROURACILE ACCORD [Suspect]
     Active Substance: FLUOROURACIL
     Indication: COLON CANCER
     Dosage: 1 DF
     Route: 042
     Dates: start: 20190107, end: 20190415
  3. SMECTA [Suspect]
     Active Substance: MONTMORILLONITE
     Indication: DIARRHOEA
     Route: 048
     Dates: start: 201901, end: 201904
  4. EMEND [Suspect]
     Active Substance: APREPITANT
     Indication: NAUSEA
     Route: 048
     Dates: start: 201904, end: 201904
  5. ZOPHREN [Suspect]
     Active Substance: ONDANSETRON
     Indication: NAUSEA
     Route: 048
     Dates: start: 201902, end: 201904
  6. FOLINATE DISODIQUE [Suspect]
     Active Substance: LEUCOVORIN
     Indication: COLON CANCER
     Dosage: 1 DF
     Route: 042
     Dates: start: 20190107, end: 20190415
  7. SPASFON [PHLOROGLUCINOL] [Suspect]
     Active Substance: PHLOROGLUCINOL
     Indication: ABDOMINAL PAIN
     Route: 048
     Dates: start: 201903, end: 201904
  8. OXALIPLATINE [Suspect]
     Active Substance: OXALIPLATIN
     Indication: COLON CANCER
     Dosage: 1 DF PER 2 WEEKS
     Route: 042
     Dates: start: 20190107, end: 20190415
  9. PARACETAMOL [Suspect]
     Active Substance: ACETAMINOPHEN
     Indication: PAIN
     Dosage: 1 GRAM
     Route: 048
     Dates: start: 20190415, end: 20190418
  10. IMODIUM [Suspect]
     Active Substance: LOPERAMIDE HYDROCHLORIDE
     Indication: DIARRHOEA
     Route: 048
     Dates: start: 201901, end: 201904
  11. PALONOSETRON ACCORD 250 MICROGRAMMES, SOLUTION INJECTABLE [Suspect]
     Active Substance: PALONOSETRON HYDROCHLORIDE
     Indication: NAUSEA
     Dosage: 1 DF
     Route: 042
     Dates: start: 20190401, end: 20190415
  12. PRIMPERAN [Suspect]
     Active Substance: METOCLOPRAMIDE HYDROCHLORIDE
     Indication: PAIN
     Dosage: 10 MG
     Route: 048
     Dates: start: 20190415
  13. TRAMADOL (CHLORHYDRATE DE) [Suspect]
     Active Substance: TRAMADOL HYDROCHLORIDE
     Indication: PAIN
     Dosage: 50 MG
     Route: 048
     Dates: start: 20190415, end: 20190418

REACTIONS (1)
  - Acute kidney injury [Recovered/Resolved]

NARRATIVE: CASE EVENT DATE: 20190417
